FAERS Safety Report 19129933 (Version 1)
Quarter: 2021Q2

REPORT INFORMATION
  Report Type: Spontaneous
  Country: CA (occurrence: CA)
  Receive Date: 20210413
  Receipt Date: 20210413
  Transmission Date: 20210717
  Serious: Yes (Other)
  Sender: FDA-Public Use
  Company Number: CA-PFIZER INC-2021399979

PATIENT
  Age: 6 Month
  Sex: Female
  Weight: 16 kg

DRUGS (14)
  1. MIDAZOLAM. [Suspect]
     Active Substance: MIDAZOLAM
     Indication: INDUCTION OF ANAESTHESIA
     Dosage: 0.8 ML
     Route: 042
  2. PROPOFOL. [Suspect]
     Active Substance: PROPOFOL
     Indication: INDUCTION OF ANAESTHESIA
     Dosage: 1.8 ML
     Route: 042
  3. ACEPROMAZINE [Suspect]
     Active Substance: ACEPROMAZINE
     Indication: SEDATIVE THERAPY
     Dosage: 0.32 ML
     Route: 030
  4. MORPHINE [Suspect]
     Active Substance: MORPHINE
     Indication: SEDATIVE THERAPY
     Dosage: 0.54 ML
     Route: 030
  5. DIAZEPAM. [Suspect]
     Active Substance: DIAZEPAM
     Dosage: 1.0 ML
     Route: 042
  6. SODIUM CHLORIDE 0.9% [Suspect]
     Active Substance: SODIUM CHLORIDE
     Indication: IRRIGATION THERAPY
     Dosage: UNK
     Route: 042
  7. DIAZEPAM. [Suspect]
     Active Substance: DIAZEPAM
     Dosage: 0.8 ML
     Route: 042
  8. DIAZEPAM. [Suspect]
     Active Substance: DIAZEPAM
     Dosage: 0.4 ML
     Route: 042
  9. DIAZEPAM. [Suspect]
     Active Substance: DIAZEPAM
     Indication: MUSCLE RIGIDITY
     Dosage: 0.8 ML
     Route: 042
  10. DIAZEPAM. [Suspect]
     Active Substance: DIAZEPAM
     Dosage: 0.8 ML
     Route: 042
  11. DIAZEPAM. [Suspect]
     Active Substance: DIAZEPAM
     Dosage: 1.0 ML
     Route: 042
  12. DIAZEPAM. [Suspect]
     Active Substance: DIAZEPAM
     Dosage: 0.4 ML
     Route: 042
  13. DIAZEPAM. [Suspect]
     Active Substance: DIAZEPAM
     Dosage: 0.8 ML
     Route: 042
  14. PROPOFOL. [Suspect]
     Active Substance: PROPOFOL
     Dosage: 2.0 ML
     Route: 042

REACTIONS (1)
  - Muscle rigidity [Recovered/Resolved]
